FAERS Safety Report 18248010 (Version 2)
Quarter: 2020Q4

REPORT INFORMATION
  Report Type: Spontaneous
  Country: US (occurrence: US)
  Receive Date: 20200909
  Receipt Date: 20201013
  Transmission Date: 20210113
  Serious: No
  Sender: FDA-Public Use
  Company Number: US-ASTRAZENECA-2020SF03528

PATIENT
  Age: 25656 Day
  Sex: Female

DRUGS (2)
  1. PULMICORT FLEXHALER [Suspect]
     Active Substance: BUDESONIDE
     Indication: ASTHMA
     Dosage: 1 PUFF TWICE A DAY
     Route: 055
     Dates: start: 20200521
  2. METOPROLOL. [Suspect]
     Active Substance: METOPROLOL
     Indication: HYPERTENSION
     Route: 065

REACTIONS (2)
  - Wrong technique in device usage process [Unknown]
  - Dysphonia [Unknown]

NARRATIVE: CASE EVENT DATE: 20200521
